FAERS Safety Report 8827456 (Version 2)
Quarter: 2012Q4

REPORT INFORMATION
  Report Type: 
  Country: DE (occurrence: DE)
  Receive Date: 20121008
  Receipt Date: 20121029
  Transmission Date: 20130627
  Serious: Yes (Other)
  Sender: FDA-Public Use
  Company Number: DE-JNJFOC-20120113199

PATIENT
  Sex: Male

DRUGS (5)
  1. HALDOL [Suspect]
     Indication: SLEEP DISORDER THERAPY
     Route: 048
     Dates: start: 20010903
  2. HALDOL [Suspect]
     Indication: SLEEP DISORDER THERAPY
     Route: 048
  3. FLUSPIRILENE [Suspect]
     Indication: PRODUCT USED FOR UNKNOWN INDICATION
     Route: 050
     Dates: start: 2001
  4. AMINEURIN [Concomitant]
     Route: 065
  5. TREVILOR [Concomitant]
     Route: 065

REACTIONS (6)
  - Psychotic disorder [Unknown]
  - Memory impairment [Unknown]
  - Disturbance in attention [Unknown]
  - Hair colour changes [Unknown]
  - Adverse event [Recovered/Resolved]
  - Abulia [Recovered/Resolved]
